FAERS Safety Report 9071129 (Version 1)
Quarter: 2013Q1

REPORT INFORMATION
  Report Type: Report from Study
  Country: US (occurrence: US)
  Receive Date: 20130129
  Receipt Date: 20130129
  Transmission Date: 20140127
  Serious: No
  Sender: FDA-Public Use
  Company Number: US-ABBOTT-12P-163-0930032-00

PATIENT
  Sex: Male

DRUGS (1)
  1. HUMIRA 40 MG/0.8 ML PEN [Suspect]
     Indication: COLITIS ULCERATIVE
     Route: 058
     Dates: start: 20120208

REACTIONS (6)
  - Dry skin [Unknown]
  - Pruritus [Unknown]
  - Scab [Unknown]
  - Epistaxis [Unknown]
  - Depressed mood [Unknown]
  - Off label use [None]
